FAERS Safety Report 15049501 (Version 1)
Quarter: 2018Q2

REPORT INFORMATION
  Report Type: Spontaneous
  Country: US (occurrence: US)
  Receive Date: 20180622
  Receipt Date: 20180622
  Transmission Date: 20180711
  Serious: Yes (Other)
  Sender: FDA-Public Use
  Company Number: US-BAYER-2018-113745

PATIENT

DRUGS (1)
  1. MIRENA [Suspect]
     Active Substance: LEVONORGESTREL
     Indication: CONTRACEPTION
     Dosage: 20 MCG/24HR, CONT
     Route: 015
     Dates: start: 201602, end: 201702

REACTIONS (4)
  - Depression [None]
  - Genital haemorrhage [None]
  - Device dislocation [None]
  - Breast cancer [None]

NARRATIVE: CASE EVENT DATE: 201602
